FAERS Safety Report 6051097-7 (Version None)
Quarter: 2009Q1

REPORT INFORMATION
  Report Type: 
  Country: None (occurrence: None)
  Receive Date: 20090126
  Receipt Date: 20080922
  Transmission Date: 20090719
  Serious: No
  Sender: FDA-Public Use
  Company Number: US-ABBOTT-08P-163-0477394-00

PATIENT
  Sex: Male
  Weight: 77.18 kg

DRUGS (2)
  1. TRICOR [Suspect]
     Indication: HIGH DENSITY LIPOPROTEIN DECREASED
     Route: 048
     Dates: end: 20080701
  2. TRICOR [Suspect]
     Indication: LOW DENSITY LIPOPROTEIN INCREASED

REACTIONS (1)
  - HIGH DENSITY LIPOPROTEIN DECREASED [None]
